FAERS Safety Report 5925264-4 (Version None)
Quarter: 2008Q3

REPORT INFORMATION
  Report Type: 
  Country: None (occurrence: None)
  Receive Date: 20080909
  Receipt Date: 20071012
  Transmission Date: 20090109
  Serious: Yes (Life-Threatening, Hospitalization)
  Sender: FDA-Public Use
  Company Number: 163-20785-07090384

PATIENT
  Age: 45 Year
  Sex: Female

DRUGS (4)
  1. THALOMID [Suspect]
     Indication: MULTIPLE MYELOMA
     Dosage: 50 MG, DAILY, ORAL
     Route: 048
     Dates: start: 20070828, end: 20070904
  2. DEXAMETHASONE TAB [Concomitant]
  3. DARBEPOETIN [Concomitant]
  4. WARFARIN SODIUM [Concomitant]

REACTIONS (5)
  - ASTHENIA [None]
  - CEREBROVASCULAR ACCIDENT [None]
  - CONFUSIONAL STATE [None]
  - GRAND MAL CONVULSION [None]
  - HAEMATOCRIT DECREASED [None]
